FAERS Safety Report 8804684 (Version 2)
Quarter: 2015Q1

REPORT INFORMATION
  Report Type: Report from Study
  Country: US (occurrence: US)
  Receive Date: 20120924
  Receipt Date: 20150327
  Transmission Date: 20150721
  Serious: Yes (Death)
  Sender: FDA-Public Use
  Company Number: US-ROCHE-1126499

PATIENT
  Sex: Male

DRUGS (21)
  1. AVASTIN [Suspect]
     Active Substance: BEVACIZUMAB
     Indication: HEPATIC CANCER
     Route: 042
  2. PEGFILGRASTIM [Concomitant]
     Active Substance: PEGFILGRASTIM
     Route: 065
  3. DEXAMETHASONE. [Concomitant]
     Active Substance: DEXAMETHASONE
     Route: 042
  4. BENADRYL [Concomitant]
     Active Substance: DIPHENHYDRAMINE HYDROCHLORIDE
     Route: 042
  5. OXALIPLATIN. [Concomitant]
     Active Substance: OXALIPLATIN
     Route: 042
  6. ZANTAC [Concomitant]
     Active Substance: RANITIDINE HYDROCHLORIDE
     Route: 042
  7. ZOFRAN [Concomitant]
     Active Substance: ONDANSETRON HYDROCHLORIDE
     Route: 042
  8. LEUCOVORIN [Concomitant]
     Active Substance: LEUCOVORIN
     Route: 042
  9. MAGNESIUM SULPHATE [Concomitant]
     Active Substance: MAGNESIUM SULFATE
     Route: 042
  10. CARBOPLATIN. [Concomitant]
     Active Substance: CARBOPLATIN
     Route: 065
  11. AVASTIN [Suspect]
     Active Substance: BEVACIZUMAB
     Indication: OESOPHAGEAL CARCINOMA
     Route: 042
     Dates: start: 20060818
  12. FILGRASTIM [Concomitant]
     Active Substance: FILGRASTIM
     Route: 065
  13. DOCETAXEL. [Concomitant]
     Active Substance: DOCETAXEL
     Route: 065
  14. OXALIPLATIN. [Concomitant]
     Active Substance: OXALIPLATIN
     Route: 065
  15. ALOXI [Concomitant]
     Active Substance: PALONOSETRON HYDROCHLORIDE
     Route: 042
  16. FLUOROURACIL. [Concomitant]
     Active Substance: FLUOROURACIL
     Route: 042
  17. LASIX [Concomitant]
     Active Substance: FUROSEMIDE
     Route: 065
  18. ATIVAN [Concomitant]
     Active Substance: LORAZEPAM
     Route: 065
  19. CALCIUM GLUCONATE. [Concomitant]
     Active Substance: CALCIUM GLUCONATE
     Route: 042
  20. CISPLATIN. [Concomitant]
     Active Substance: CISPLATIN
     Route: 042
  21. IRINOTECAN [Concomitant]
     Active Substance: IRINOTECAN
     Route: 042

REACTIONS (7)
  - Anaemia [Unknown]
  - Pain [Unknown]
  - Death [Fatal]
  - Vomiting [Unknown]
  - Off label use [Unknown]
  - Fatigue [Unknown]
  - Nausea [Unknown]
